FAERS Safety Report 20470799 (Version 1)
Quarter: 2022Q1

REPORT INFORMATION
  Report Type: Spontaneous
  Country: US (occurrence: US)
  Receive Date: 20220214
  Receipt Date: 20220214
  Transmission Date: 20220423
  Serious: No
  Sender: FDA-Public Use
  Company Number: US-KALA PHARAMACEUTICALS-2021KLA00127

PATIENT
  Sex: Female

DRUGS (3)
  1. EYSUVIS [Suspect]
     Active Substance: LOTEPREDNOL ETABONATE
  2. XIIDRA [Concomitant]
     Active Substance: LIFITEGRAST
  3. BLINK GEL DROPS [Concomitant]

REACTIONS (4)
  - Chest pain [Unknown]
  - Dyspnoea [Unknown]
  - Back pain [Unknown]
  - Reaction to excipient [Unknown]
